FAERS Safety Report 8846937 (Version 1)
Quarter: 2012Q4

REPORT INFORMATION
  Report Type: Spontaneous
  Country: US (occurrence: None)
  Receive Date: 20121016
  Receipt Date: 20121016
  Transmission Date: 20130627
  Serious: Yes (Other)
  Sender: FDA-Public Use
  Company Number: 001370700A

PATIENT
  Age: 49 Year
  Sex: Female

DRUGS (27)
  1. PROACTIV [Suspect]
     Indication: ACNE
     Dosage: dermal
     Dates: start: 20120903
  2. NIFEDIPINE [Concomitant]
  3. HCTZ [Concomitant]
  4. PROZAC [Concomitant]
  5. PROPRANOLOL [Concomitant]
  6. SOMA [Concomitant]
  7. METHOTREXATE [Concomitant]
  8. ENBREL [Concomitant]
  9. ESTRADIOL [Concomitant]
  10. SPIRONOLACTONE [Concomitant]
  11. AMBIEN [Concomitant]
  12. NORCO [Concomitant]
  13. TRAMADOL [Concomitant]
  14. LYRICA [Concomitant]
  15. SINGULAIR [Concomitant]
  16. PATADAY EYE DROPS [Concomitant]
  17. FLONASE [Concomitant]
  18. XANAX [Concomitant]
  19. ROMETHAZINE [Concomitant]
  20. CLONIDINE [Concomitant]
  21. FLAXSEED OIL [Concomitant]
  22. CALCIUM [Concomitant]
  23. MAGNESIUM [Concomitant]
  24. B COMPLEX [Concomitant]
  25. IRON [Concomitant]
  26. FOLIC ACID [Concomitant]
  27. MULTIVITS [Concomitant]

REACTIONS (4)
  - Paraesthesia [None]
  - Scab [None]
  - Road traffic accident [None]
  - Thermal burn [None]
